FAERS Safety Report 8005418-6 (Version None)
Quarter: 2011Q4

REPORT INFORMATION
  Report Type: 
  Country: None (occurrence: None)
  Receive Date: 20111223
  Receipt Date: 20111214
  Transmission Date: 20120403
  Serious: Yes (Hospitalization)
  Sender: FDA-Public Use
  Company Number: GB-ROCHE-1023523

PATIENT
  Sex: Male
  Weight: 80.5 kg

DRUGS (5)
  1. ALFUZOSIN HCL [Concomitant]
     Indication: PROSTATOMEGALY
     Dosage: DOSE 10 MG ML
     Route: 048
     Dates: start: 19900101
  2. ASPIRIN [Concomitant]
     Indication: PROPHYLAXIS
     Route: 048
     Dates: start: 19950101
  3. COTRIM [Concomitant]
     Indication: PROPHYLAXIS
     Dosage: BD 3 TIMES A WEEK
     Route: 048
     Dates: start: 20101214
  4. FINASTERIDE [Concomitant]
     Indication: PROSTATOMEGALY
     Route: 048
     Dates: start: 19900101
  5. MABTHERA [Suspect]
     Indication: B-CELL LYMPHOMA

REACTIONS (1)
  - POLLAKIURIA [None]
